FAERS Safety Report 7506865-9 (Version None)
Quarter: 2011Q2

REPORT INFORMATION
  Report Type: 
  Country: None (occurrence: None)
  Receive Date: 20110526
  Receipt Date: 20110519
  Transmission Date: 20111010
  Serious: Yes (Other)
  Sender: FDA-Public Use
  Company Number: B0721806A

PATIENT
  Sex: Male
  Weight: 59 kg

DRUGS (5)
  1. VALDISPERT [Concomitant]
     Indication: ANXIETY
     Route: 065
     Dates: start: 20080101
  2. FINASTERIDE [Concomitant]
     Dosage: 5MG PER DAY
     Route: 048
     Dates: start: 20110412
  3. INDAPAMIDE [Concomitant]
     Dosage: 1.5MG PER DAY
     Route: 048
     Dates: start: 20090101
  4. DUTASTERIDE/TAMSULIN HYDROCHLORIDE [Suspect]
     Route: 048
     Dates: start: 20110413, end: 20110426
  5. TAMSULOSIN HCL [Concomitant]
     Dosage: .4MG PER DAY
     Route: 048
     Dates: start: 20110412

REACTIONS (5)
  - BLISTER [None]
  - NASAL OEDEMA [None]
  - DIZZINESS [None]
  - RASH [None]
  - LIP SWELLING [None]
